FAERS Safety Report 6572576-X (Version None)
Quarter: 2010Q1

REPORT INFORMATION
  Report Type: 
  Country: None (occurrence: None)
  Receive Date: 20100205
  Receipt Date: 20100129
  Transmission Date: 20100710
  Serious: Yes (Hospitalization)
  Sender: FDA-Public Use
  Company Number: GXKR2010ES00828

PATIENT
  Age: 58 Year
  Sex: Male

DRUGS (9)
  1. CARBOPLATIN (NGX) [Suspect]
     Indication: NON-SMALL CELL LUNG CANCER
     Route: 065
  2. PEMETREXED [Suspect]
     Indication: NON-SMALL CELL LUNG CANCER
     Dosage: 500 MG/M2, UNK
     Route: 065
  3. OPTOVITE B12 [Suspect]
     Indication: HAEMATOTOXICITY
     Dosage: 1 MG, UNK
     Route: 030
  4. OPTOVITE B12 [Suspect]
     Indication: GASTROINTESTINAL TOXICITY
  5. ROCHEVIT [Suspect]
     Dosage: 1 DF, Q8H
     Route: 048
  6. DEXAMETHASONE [Concomitant]
     Dosage: 20 MG, UNK
  7. DEXAMETHASONE [Concomitant]
     Dosage: 4 MG/DAY
     Route: 048
  8. QUETIAPINE [Concomitant]
     Indication: BIPOLAR DISORDER
     Dosage: 200 MG/DAY
     Route: 065
  9. VALPROIC ACID [Concomitant]
     Indication: BIPOLAR DISORDER
     Dosage: 500 MG/12 HOUR
     Route: 065

REACTIONS (10)
  - BLISTER [None]
  - DYSPHAGIA [None]
  - ERYTHEMA [None]
  - EYE IRRITATION [None]
  - OCULAR HYPERAEMIA [None]
  - PANCYTOPENIA [None]
  - PRURITUS [None]
  - PYREXIA [None]
  - SKIN EXFOLIATION [None]
  - TOXIC EPIDERMAL NECROLYSIS [None]
